FAERS Safety Report 5224692-2 (Version None)
Quarter: 2007Q1

REPORT INFORMATION
  Report Type: 
  Country: None (occurrence: None)
  Receive Date: 20070129
  Receipt Date: 20070129
  Transmission Date: 20070707
  Serious: Yes (Hospitalization)
  Sender: FDA-Public Use
  Company Number: None

PATIENT
  Sex: Male
  Weight: 83 kg

DRUGS (6)
  1. CYCLOPHOSPHAMIDE [Suspect]
     Dosage: 2435 MG
  2. DAUNORUBICIN HCL [Suspect]
     Dosage: 486 MG
  3. ALLOPURINOL SODIUM [Suspect]
     Dosage: 4200  MG
  4. DEXAMETHASONE [Suspect]
     Dosage: 1200 MG
  5. ELSPAR [Suspect]
     Dosage: 609000 UNIT
  6. VINCRISTINE SULFATE [Suspect]
     Dosage: 8 MG

REACTIONS (17)
  - ABDOMINAL PAIN UPPER [None]
  - BACTERAEMIA [None]
  - DISSEMINATED INTRAVASCULAR COAGULATION [None]
  - FEBRILE NEUTROPENIA [None]
  - FUNGAL INFECTION [None]
  - GASTROINTESTINAL INFLAMMATION [None]
  - GENERAL PHYSICAL HEALTH DETERIORATION [None]
  - HERPES ZOSTER DISSEMINATED [None]
  - HYPOXIA [None]
  - LIVER ABSCESS [None]
  - LUNG INFILTRATION [None]
  - LUNG NEOPLASM [None]
  - MENTAL STATUS CHANGES [None]
  - PATHOGEN RESISTANCE [None]
  - PSEUDOMONAS INFECTION [None]
  - STAPHYLOCOCCAL BACTERAEMIA [None]
  - TUMOUR LYSIS SYNDROME [None]
